FAERS Safety Report 6572361-9 (Version None)
Quarter: 2010Q1

REPORT INFORMATION
  Report Type: 
  Country: None (occurrence: None)
  Receive Date: 20100205
  Receipt Date: 20100126
  Transmission Date: 20100710
  Serious: Yes (Other)
  Sender: FDA-Public Use
  Company Number: US-JNJFOC-20091008443

PATIENT
  Age: 59 Year
  Sex: Female

DRUGS (2)
  1. REMICADE [Suspect]
     Indication: CROHN'S DISEASE
     Dosage: 6 DOSES OF INFLIXIMAB
     Route: 042
  2. ADALIMUMAB [Concomitant]

REACTIONS (1)
  - RESTRICTIVE PULMONARY DISEASE [None]
